FAERS Safety Report 5973818-1 (Version None)
Quarter: 2008Q4

REPORT INFORMATION
  Report Type: 
  Country: None (occurrence: None)
  Receive Date: 20081201
  Receipt Date: 20081124
  Transmission Date: 20090506
  Serious: Yes (Other)
  Sender: FDA-Public Use
  Company Number: FR-WYE-G02353308

PATIENT
  Sex: Male
  Weight: 68 kg

DRUGS (7)
  1. TORISEL [Suspect]
     Indication: RENAL CANCER METASTATIC
     Dosage: 25 MG EVERY 1 CYC
     Route: 042
     Dates: start: 20080422, end: 20080604
  2. PYRALVEX [Concomitant]
     Indication: APHTHOUS STOMATITIS
     Dosage: UNKNOWN
     Route: 061
     Dates: start: 20080513
  3. ARANESP [Concomitant]
     Indication: ANAEMIA
     Dosage: UNKNOWN
     Route: 058
     Dates: start: 20080422, end: 20080604
  4. ARANESP [Concomitant]
     Route: 058
     Dates: start: 20080605
  5. DI-ANTALVIC [Concomitant]
     Indication: ANALGESIC THERAPY
     Dosage: UNKNOWN
     Route: 048
     Dates: start: 20080416
  6. POLARAMINE [Concomitant]
     Indication: PREMEDICATION
     Dosage: 5 MG BEFORE TORISEL COURSE
     Route: 042
     Dates: end: 20080604
  7. RANITIDINE HCL [Concomitant]
     Indication: PREMEDICATION
     Dosage: 50 MG BEFORE TORISEL COURSE
     Route: 042
     Dates: end: 20080604

REACTIONS (8)
  - BLOOD PRESSURE DECREASED [None]
  - CHEST PAIN [None]
  - CONVULSION [None]
  - ERYTHEMA [None]
  - GENERALISED ERYTHEMA [None]
  - HYPERSENSITIVITY [None]
  - LOSS OF CONSCIOUSNESS [None]
  - PRESYNCOPE [None]
